FAERS Safety Report 13580708 (Version 3)
Quarter: 2018Q1

REPORT INFORMATION
  Report Type: Report from Study
  Country: MY (occurrence: AU)
  Receive Date: 20170525
  Receipt Date: 20180327
  Transmission Date: 20180508
  Serious: Yes (Other)
  Sender: FDA-Public Use
  Company Number: MY-PFIZER INC-2017224627

PATIENT
  Age: 52 Year
  Sex: Male

DRUGS (7)
  1. SULFAMETHOXAZOLE/TRIMETHOPRIM [Suspect]
     Active Substance: SULFAMETHOXAZOLE\TRIMETHOPRIM
     Indication: PHOTOSENSITIVITY REACTION
     Dosage: UNK
  2. VORICONAZOLE. [Suspect]
     Active Substance: VORICONAZOLE
     Dosage: 200 MG, 2X/DAY
  3. VORICONAZOLE. [Suspect]
     Active Substance: VORICONAZOLE
     Indication: LUNG TRANSPLANT
     Dosage: 100 MG, 2X/DAY
  4. SULFAMETHOXAZOLE/TRIMETHOPRIM [Suspect]
     Active Substance: SULFAMETHOXAZOLE\TRIMETHOPRIM
     Indication: ANTIFUNGAL PROPHYLAXIS
  5. MYCOPHENOLATE MOFETIL. [Suspect]
     Active Substance: MYCOPHENOLATE MOFETIL
     Indication: IMMUNOSUPPRESSANT DRUG THERAPY
     Dosage: UNK
  6. CYCLOSPORIN [Suspect]
     Active Substance: CYCLOSPORINE
     Indication: IMMUNOSUPPRESSANT DRUG THERAPY
     Dosage: UNK
  7. PREDNISOLONE. [Suspect]
     Active Substance: PREDNISOLONE
     Indication: IMMUNOSUPPRESSANT DRUG THERAPY
     Dosage: UNK

REACTIONS (5)
  - Squamous cell carcinoma [Recovered/Resolved]
  - Bowen^s disease [Recovered/Resolved]
  - Basal cell carcinoma [Recovered/Resolved]
  - Disease recurrence [Recovered/Resolved]
  - Recurrent cancer [None]
